FAERS Safety Report 5409939-1 (Version None)
Quarter: 2007Q3

REPORT INFORMATION
  Report Type: 
  Country: None (occurrence: None)
  Receive Date: 20070809
  Receipt Date: 20031015
  Transmission Date: 20080115
  Serious: Yes (Hospitalization, Other)
  Sender: FDA-Public Use
  Company Number: US-PFIZER INC-2003113673

PATIENT
  Age: 60 Year
  Sex: Male
  Weight: 194 kg

DRUGS (15)
  1. VFEND [Suspect]
     Indication: FUNGAL INFECTION
     Dosage: DAILY DOSE:1200MG-FREQ:BID
     Route: 042
     Dates: start: 20031013, end: 20031017
  2. NOREPINEPHRINE BITARTRATE [Concomitant]
  3. POTASSIUM CHLORIDE [Concomitant]
  4. METRONIDAZOLE [Concomitant]
  5. FUROSEMIDE SODIUM [Concomitant]
     Route: 042
  6. METHYLPREDNISOLONE SODIUM SUCCINATE [Concomitant]
  7. HEPARIN [Concomitant]
     Route: 058
  8. IPRATROPIUM BROMIDE AND SALBUTAMOL SULFATE [Concomitant]
  9. LANSOPRAZOLE [Concomitant]
  10. VITAMINS NOS AND MINERALS NOS [Concomitant]
  11. FLUDROCORTISONE ACETATE [Concomitant]
  12. MORPHINE [Concomitant]
  13. ACETAZOLAMIDE [Concomitant]
  14. LORAZEPAM [Concomitant]
  15. FLUCONAZOLE [Concomitant]

REACTIONS (11)
  - BLOOD CHLORIDE INCREASED [None]
  - BLOOD CREATININE INCREASED [None]
  - BLOOD GLUCOSE INCREASED [None]
  - BLOOD UREA INCREASED [None]
  - DRUG INEFFECTIVE [None]
  - INFECTION [None]
  - LETHARGY [None]
  - MENTAL STATUS CHANGES [None]
  - NEUROLOGICAL SYMPTOM [None]
  - TRACHEOSTOMY [None]
  - WHITE BLOOD CELL COUNT INCREASED [None]
